FAERS Safety Report 18875630 (Version 1)
Quarter: 2021Q1

REPORT INFORMATION
  Report Type: Spontaneous
  Country: CA (occurrence: CA)
  Receive Date: 20210211
  Receipt Date: 20210211
  Transmission Date: 20210420
  Serious: Yes (Other)
  Sender: FDA-Public Use
  Company Number: CA-ADIENNEP-2021AD000021

PATIENT
  Age: 3 Year

DRUGS (6)
  1. BUSULFEX [Suspect]
     Active Substance: BUSULFAN
     Indication: STEM CELL TRANSPLANT
     Dosage: ()
  2. BUSULFEX [Suspect]
     Active Substance: BUSULFAN
     Indication: STEM CELL TRANSPLANT
     Dosage: ()
  3. THIOTEPA. [Suspect]
     Active Substance: THIOTEPA
     Indication: STEM CELL TRANSPLANT
  4. BUSULFEX [Suspect]
     Active Substance: BUSULFAN
     Indication: STEM CELL TRANSPLANT
     Dosage: ()
  5. ALEMTUZUMAB [Suspect]
     Active Substance: ALEMTUZUMAB
     Indication: STEM CELL TRANSPLANT
     Dosage: ()
  6. FLUDARABINE [Suspect]
     Active Substance: FLUDARABINE PHOSPHATE
     Indication: STEM CELL TRANSPLANT

REACTIONS (10)
  - Acute kidney injury [Unknown]
  - Human herpesvirus 6 infection [Unknown]
  - Cytomegalovirus infection reactivation [Unknown]
  - Gastroenteritis adenovirus [Unknown]
  - Pneumocystis jirovecii pneumonia [Unknown]
  - Enteritis [Unknown]
  - Pneumonia respiratory syncytial viral [Unknown]
  - Autoimmune haemolytic anaemia [Unknown]
  - Iron overload [Unknown]
  - Product use in unapproved indication [Unknown]
